FAERS Safety Report 21824347 (Version 1)
Quarter: 2023Q1

REPORT INFORMATION
  Report Type: Spontaneous
  Country: US (occurrence: None)
  Receive Date: 20230105
  Receipt Date: 20230105
  Transmission Date: 20230418
  Serious: Yes (Other)
  Sender: FDA-Public Use
  Company Number: None

PATIENT
  Age: 16 Year
  Sex: Female
  Weight: 39.92 kg

DRUGS (1)
  1. ASENAPINE MALEATE [Suspect]
     Active Substance: ASENAPINE MALEATE
     Indication: Bipolar disorder
     Dosage: FREQUENCY : AS DIRECTED;?
     Route: 060

REACTIONS (4)
  - Choking [None]
  - Stomatitis [None]
  - Product substitution issue [None]
  - Product solubility abnormal [None]

NARRATIVE: CASE EVENT DATE: 20221215
